FAERS Safety Report 12756813 (Version 2)
Quarter: 2016Q4

REPORT INFORMATION
  Report Type: Report from Study
  Country: JP (occurrence: JP)
  Receive Date: 20160917
  Receipt Date: 20161020
  Transmission Date: 20170207
  Serious: Yes (Hospitalization, Other)
  Sender: FDA-Public Use
  Company Number: JP-AMGEN-JPNCT2016034712

PATIENT
  Age: 65 Year
  Sex: Male
  Weight: 62.5 kg

DRUGS (19)
  1. ELPLAT [Suspect]
     Active Substance: OXALIPLATIN
     Dosage: 85 MG/M2, Q2WEEKS
     Route: 041
     Dates: start: 20160208, end: 20160222
  2. VECTIBIX [Suspect]
     Active Substance: PANITUMUMAB
     Indication: COLON CANCER
     Dosage: 6 MG/KG, Q2WEEKS
     Route: 041
     Dates: start: 20151215, end: 20160118
  3. 5-FU [Suspect]
     Active Substance: FLUOROURACIL
     Dosage: 2400 MG/M2, Q2WEEKS
     Route: 041
     Dates: start: 20151215, end: 20160118
  4. 5-FU [Suspect]
     Active Substance: FLUOROURACIL
     Dosage: 200 MG/M2, Q2WK
     Route: 040
     Dates: start: 20160404, end: 20160404
  5. 5-FU [Suspect]
     Active Substance: FLUOROURACIL
     Dosage: 200 MG/M2, Q2WK
     Route: 040
     Dates: start: 20160502, end: 20160725
  6. ELPLAT [Suspect]
     Active Substance: OXALIPLATIN
     Dosage: 65 MG/M2, Q2WEEKS
     Route: 041
     Dates: start: 20160404, end: 20160404
  7. CALCIUM LEVOFOLINATE [Concomitant]
     Active Substance: LEVOLEUCOVORIN CALCIUM
     Dosage: 200 MG/M2, Q2WEEKS
     Route: 041
     Dates: start: 20160404, end: 20160404
  8. VECTIBIX [Suspect]
     Active Substance: PANITUMUMAB
     Dosage: 4.6 MG/KG, Q2WEEKS
     Route: 041
     Dates: start: 20160404, end: 20160404
  9. ELPLAT [Suspect]
     Active Substance: OXALIPLATIN
     Indication: COLON CANCER
     Dosage: 85 MG/M2, Q2WEEKS
     Route: 041
     Dates: start: 20151215, end: 20160118
  10. VECTIBIX [Suspect]
     Active Substance: PANITUMUMAB
     Dosage: 4.6 MG/KG, Q2WEEKS
     Route: 041
     Dates: start: 20160502, end: 20160627
  11. 5-FU [Suspect]
     Active Substance: FLUOROURACIL
     Dosage: 400 MG/M2, Q2WK
     Route: 040
     Dates: start: 20160208, end: 20160222
  12. 5-FU [Suspect]
     Active Substance: FLUOROURACIL
     Dosage: 2400 MG/M2, Q2WEEKS
     Route: 041
     Dates: start: 20160208, end: 20160222
  13. CALCIUM LEVOFOLINATE [Concomitant]
     Active Substance: LEVOLEUCOVORIN CALCIUM
     Indication: COLON CANCER
     Dosage: 200 MG/M2, Q2WEEKS
     Route: 041
     Dates: start: 20151215, end: 20160118
  14. CALCIUM LEVOFOLINATE [Concomitant]
     Active Substance: LEVOLEUCOVORIN CALCIUM
     Dosage: 200 MG/M2, Q2WEEKS
     Route: 041
     Dates: start: 20160208, end: 20160222
  15. VECTIBIX [Suspect]
     Active Substance: PANITUMUMAB
     Dosage: 4.6 MG/KG, Q2WEEKS
     Route: 041
     Dates: start: 20160208, end: 20160222
  16. 5-FU [Suspect]
     Active Substance: FLUOROURACIL
     Dosage: 2400 MG/M2, Q2WEEKS
     Route: 041
     Dates: start: 20160404, end: 20160404
  17. 5-FU [Suspect]
     Active Substance: FLUOROURACIL
     Dosage: 2400 MG/M2, Q2WK
     Route: 041
     Dates: start: 20160502, end: 20160725
  18. 5-FU [Suspect]
     Active Substance: FLUOROURACIL
     Indication: COLON CANCER
     Dosage: 400 MG/M2, Q2WK
     Route: 040
     Dates: start: 20151215, end: 20160118
  19. CALCIUM LEVOFOLINATE [Concomitant]
     Active Substance: LEVOLEUCOVORIN CALCIUM
     Dosage: 200 MG/M2, Q2WEEKS
     Route: 041
     Dates: start: 20160502, end: 20160725

REACTIONS (15)
  - Dermatitis acneiform [Not Recovered/Not Resolved]
  - Paronychia [Not Recovered/Not Resolved]
  - Decreased appetite [Recovered/Resolved]
  - Hypernatraemia [Recovering/Resolving]
  - Hypomagnesaemia [Recovering/Resolving]
  - Fatigue [Recovered/Resolved]
  - Vomiting [Recovering/Resolving]
  - Hypoalbuminaemia [Not Recovered/Not Resolved]
  - Dysgeusia [Recovered/Resolved]
  - Neuropathy peripheral [Recovered/Resolved]
  - Stomatitis [Recovering/Resolving]
  - Nausea [Recovered/Resolved]
  - Diarrhoea [Recovered/Resolved]
  - Dehydration [Recovered/Resolved]
  - Fracture [Recovering/Resolving]

NARRATIVE: CASE EVENT DATE: 20160104
